FAERS Safety Report 6035014-1 (Version None)
Quarter: 2009Q1

REPORT INFORMATION
  Report Type: 
  Country: None (occurrence: None)
  Receive Date: 20090112
  Receipt Date: 20090107
  Transmission Date: 20090719
  Serious: Yes (Life-Threatening, Hospitalization)
  Sender: FDA-Public Use
  Company Number: JP-EISAI MEDICAL RESEARCH-ZONI001435

PATIENT
  Sex: Female

DRUGS (10)
  1. EXCEGRAN [Suspect]
     Indication: EPILEPSY
     Dosage: 60 MG
     Route: 048
     Dates: start: 20031203, end: 20040309
  2. EXCEGRAN [Suspect]
     Indication: CONVULSION
  3. DEPAKENE [Suspect]
     Indication: EPILEPSY
     Dosage: 199.8 MG
     Dates: start: 20031103, end: 20040309
  4. DEPAKENE [Suspect]
     Indication: CONVULSION
  5. CORTROSYN Z [Concomitant]
     Dates: start: 20040113, end: 20040301
  6. CLARITHROMYCIN [Concomitant]
     Dates: start: 20040113, end: 20040301
  7. ENTERONON [Concomitant]
     Dates: start: 20040227, end: 20040505
  8. MUCODYNE [Concomitant]
     Dates: start: 20040229, end: 20040505
  9. BISOLVON [Concomitant]
     Dates: start: 20040229, end: 20040505
  10. ADRENOCORTICOTROPIC HORMONE [Concomitant]
     Dates: start: 20040101

REACTIONS (1)
  - INTERSTITIAL LUNG DISEASE [None]
